FAERS Safety Report 4474090-4 (Version None)
Quarter: 2004Q4

REPORT INFORMATION
  Report Type: 
  Country: None (occurrence: None)
  Receive Date: 20041008
  Receipt Date: 20041001
  Transmission Date: 20050328
  Serious: Yes (Hospitalization)
  Sender: FDA-Public Use
  Company Number: 2004-04293

PATIENT
  Age: 71 Year
  Sex: Female
  Weight: 55.8 kg

DRUGS (8)
  1. HYDROCODONE BITARTRATE/ACETAMINOPHEN 10/325 MG (WATSON LABORATORIES) A [Suspect]
     Indication: ARTHRALGIA
     Dosage: 1 TABLET, QID, ORAL
     Route: 048
     Dates: start: 19990101
  2. HYDROCODONE BITARTRATE/ACETAMINOPHEN 10/325 MG (WATSON LABORATORIES) A [Suspect]
     Indication: BACK PAIN
     Dosage: 1 TABLET, QID, ORAL
     Route: 048
     Dates: start: 19990101
  3. ATENOLOL [Concomitant]
  4. ZESTRIL [Concomitant]
  5. LIPITOR [Concomitant]
  6. OMEPRAZOLE [Concomitant]
  7. XANAX [Concomitant]
  8. ASPIRIN [Concomitant]

REACTIONS (1)
  - CARDIAC FAILURE CONGESTIVE [None]
